FAERS Safety Report 8808989 (Version 2)
Quarter: 2012Q4

REPORT INFORMATION
  Report Type: 
  Country: DE (occurrence: DE)
  Receive Date: 20120926
  Receipt Date: 20121105
  Transmission Date: 20130627
  Serious: Yes (Death, Other)
  Sender: FDA-Public Use
  Company Number: PHHY2012DE080086

PATIENT
  Age: 15 Year
  Sex: Female

DRUGS (6)
  1. CICLOSPORIN [Suspect]
     Indication: HISTIOCYTOSIS HAEMATOPHAGIC
  2. DEXAMETHASONE [Concomitant]
     Indication: HISTIOCYTOSIS HAEMATOPHAGIC
  3. ETOPOSIDE [Concomitant]
     Indication: HISTIOCYTOSIS HAEMATOPHAGIC
  4. RITUXIMAB [Concomitant]
     Indication: LYMPHOPROLIFERATIVE DISORDER
  5. CYCLOPHOSPHAMIDE [Concomitant]
     Indication: LYMPHOPROLIFERATIVE DISORDER
  6. PREDNISOLONE [Concomitant]
     Indication: LYMPHOPROLIFERATIVE DISORDER

REACTIONS (11)
  - Pulmonary haemorrhage [Fatal]
  - Fungal infection [Fatal]
  - Posterior reversible encephalopathy syndrome [Recovered/Resolved]
  - Tremor [Recovered/Resolved]
  - Somnolence [Recovered/Resolved]
  - Dysarthria [Recovered/Resolved]
  - Lethargy [Recovered/Resolved]
  - Blood pressure increased [Recovered/Resolved]
  - Neurotoxicity [Recovered/Resolved]
  - Toxicity to various agents [Recovered/Resolved]
  - Diplopia [Recovered/Resolved]
